FAERS Safety Report 8517035-X (Version None)
Quarter: 2012Q3

REPORT INFORMATION
  Report Type: 
  Country: None (occurrence: None)
  Receive Date: 20120718
  Receipt Date: 20120710
  Transmission Date: 20120928
  Serious: Yes (Hospitalization, Other)
  Sender: FDA-Public Use
  Company Number: GB-SANOFI-AVENTIS-2012SA013665

PATIENT
  Sex: Female
  Weight: 78 kg

DRUGS (10)
  1. TOCILIZUMAB [Suspect]
     Dosage: EVERY 4 WEEKS
     Route: 042
     Dates: start: 20110929
  2. TOCILIZUMAB [Suspect]
     Dosage: EVERY 4 WEEKS
     Route: 042
     Dates: start: 20111222
  3. LEFLUNOMIDE [Suspect]
     Route: 065
     Dates: start: 20111011
  4. TOCILIZUMAB [Suspect]
     Indication: RHEUMATOID ARTHRITIS
     Dosage: EVERY 4 WEEKS
     Route: 042
     Dates: start: 20110804, end: 20110829
  5. TOCILIZUMAB [Suspect]
     Dosage: EVERY 4 WEEKS
     Route: 042
     Dates: start: 20120119, end: 20120229
  6. TOCILIZUMAB [Suspect]
     Dosage: EVERY 4 WEEKS
     Route: 042
     Dates: start: 20111027
  7. LEFLUNOMIDE [Suspect]
     Route: 065
     Dates: start: 20110215, end: 20111010
  8. CORTICOSTEROID NOS [Concomitant]
     Route: 048
  9. TOCILIZUMAB [Suspect]
     Dosage: EVERY 4 WEEKS
     Route: 042
     Dates: start: 20110906
  10. TOCILIZUMAB [Suspect]
     Dosage: EVERY 4 WEEKS
     Route: 042
     Dates: start: 20111124

REACTIONS (5)
  - ALANINE AMINOTRANSFERASE INCREASED [None]
  - ABDOMINAL PAIN [None]
  - ASPARTATE AMINOTRANSFERASE INCREASED [None]
  - HEPATIC ENZYME INCREASED [None]
  - DIVERTICULITIS [None]
